FAERS Safety Report 5655633-1 (Version None)
Quarter: 2008Q1

REPORT INFORMATION
  Report Type: 
  Country: None (occurrence: None)
  Receive Date: 20080307
  Receipt Date: 20080228
  Transmission Date: 20080703
  Serious: Yes (Death, Life-Threatening, Other)
  Sender: FDA-Public Use
  Company Number: US-PURDUE-USA_2007_0028669

PATIENT
  Age: 26 Year
  Sex: Male
  Weight: 36 kg

DRUGS (3)
  1. BETADINE SOLUTION 10% [Concomitant]
     Dates: start: 20060204, end: 20060204
  2. MORPHINE SULFATE [Suspect]
     Indication: ACCIDENTAL EXPOSURE
     Dosage: 100 MG, TWICE
     Route: 042
     Dates: start: 20060204, end: 20060204
  3. ATIVAN [Suspect]
     Indication: ACCIDENTAL EXPOSURE
     Dosage: 40 MG, TWICE
     Route: 042
     Dates: start: 20060204, end: 20060204

REACTIONS (5)
  - CHILLS [None]
  - DEATH [None]
  - FOAMING AT MOUTH [None]
  - MULTI-ORGAN FAILURE [None]
  - MULTIPLE DRUG OVERDOSE [None]
